FAERS Safety Report 6411247-7 (Version None)
Quarter: 2009Q4

REPORT INFORMATION
  Report Type: 
  Country: None (occurrence: None)
  Receive Date: 20091020
  Receipt Date: 20091012
  Transmission Date: 20100525
  Serious: Yes (Death, Other)
  Sender: FDA-Public Use
  Company Number: 2009US002417

PATIENT
  Age: 58 Year
  Sex: Male
  Weight: 71 kg

DRUGS (25)
  1. AMBISOME [Suspect]
     Indication: DRUG USE FOR UNKNOWN INDICATION
     Dosage: 3 MG/KG, 3XWEEKLY, IV NOS; 7 MG/KG, 4XWEEKLY, IV NOS
     Route: 042
     Dates: start: 20090101, end: 20090101
  2. AMBISOME [Suspect]
     Indication: DRUG USE FOR UNKNOWN INDICATION
     Dosage: 3 MG/KG, 3XWEEKLY, IV NOS; 7 MG/KG, 4XWEEKLY, IV NOS
     Route: 042
     Dates: start: 20081202, end: 20090102
  3. CERNEVIT-12 [Concomitant]
  4. FOSCAVIR [Concomitant]
  5. BICARBONATE (SODIUM BICARBONATE) [Concomitant]
  6. BACTRIM [Concomitant]
  7. ACETAMINOPHEN [Concomitant]
  8. PIPERACILLIN SODIUM AND TAZOBACTAM SODIUM [Concomitant]
  9. ALIZAPRIDE (ALIZAPRIDE) [Concomitant]
  10. FARGANESSE (PROMETHAZINE HYDROCHLORIDE) [Concomitant]
  11. LEDERFOLIN (CALCIUM LEVOFOLINATE) [Concomitant]
  12. LINEZOLID [Concomitant]
  13. KYBERNIN (ANTITHROMBIN III) [Concomitant]
  14. POTASSIUM CHLORIDE [Concomitant]
  15. MAGNESIUM (MAGNESIUM) [Concomitant]
  16. INSULINE (INSULIN PORCINE) [Concomitant]
  17. LASIX [Concomitant]
  18. CALCIUM GLUCONATE [Concomitant]
  19. ZYLORIC [Concomitant]
  20. DEURSIL (URSODEOXYCHOLIC ACID) [Concomitant]
  21. ZOFRAN [Concomitant]
  22. ARTROSILENE (KETOPROFEN LYSINE) [Concomitant]
  23. DISSENTEN (LOPERAMIDE HYDROCHLORIDE) [Concomitant]
  24. CORDARONE [Concomitant]
  25. SOLU-MEDROL [Concomitant]

REACTIONS (4)
  - CEREBROVASCULAR ACCIDENT [None]
  - COMA [None]
  - PYREXIA [None]
  - SHOCK [None]
